FAERS Safety Report 8969452 (Version 2)
Quarter: 2013Q1

REPORT INFORMATION
  Report Type: Spontaneous
  Country: GR (occurrence: GR)
  Receive Date: 20121218
  Receipt Date: 20130118
  Transmission Date: 20140127
  Serious: Yes (Other)
  Sender: FDA-Public Use
  Company Number: GR-AMGEN-GRCSP2012080579

PATIENT
  Age: 65 Year
  Sex: Female

DRUGS (1)
  1. PROLIA [Suspect]
     Indication: OSTEOPOROSIS
     Dosage: 60 MG, Q6MO
     Dates: start: 201204

REACTIONS (8)
  - Arrhythmia [Recovered/Resolved]
  - Nervous system disorder [Recovering/Resolving]
  - Hypoacusis [Recovering/Resolving]
  - Blood pressure fluctuation [Recovering/Resolving]
  - Dizziness [Recovered/Resolved]
  - Tension [Recovered/Resolved]
  - Blood pressure abnormal [Recovered/Resolved]
  - Sciatica [Recovering/Resolving]
